FAERS Safety Report 5889766-1 (Version None)
Quarter: 2008Q3

REPORT INFORMATION
  Report Type: 
  Country: None (occurrence: None)
  Receive Date: 20080919
  Receipt Date: 20080908
  Transmission Date: 20090109
  Serious: Yes (Death, Hospitalization)
  Sender: FDA-Public Use
  Company Number: FR-ELI_LILLY_AND_COMPANY-FR200809001494

PATIENT
  Sex: Female

DRUGS (8)
  1. ZYPREXA [Suspect]
     Indication: DEPRESSION
     Dosage: 5 MG, DAILY (1/D)
     Route: 048
     Dates: start: 20080304, end: 20080308
  2. TRIFLUCAN [Concomitant]
     Indication: ORAL FUNGAL INFECTION
     Dosage: 1 D/F, OTHER
     Route: 048
     Dates: start: 20080301, end: 20080310
  3. SEROPRAM [Concomitant]
     Indication: DEPRESSION
     Dosage: 20 MG, DAILY (1/D)
     Route: 042
     Dates: start: 20080225, end: 20080304
  4. SEROPRAM [Concomitant]
     Dosage: 40 MG, DAILY (1/D)
     Dates: start: 20080305, end: 20080308
  5. RISPERIDONE [Concomitant]
     Indication: DEPRESSION
     Dosage: 1 MG, DAILY (1/D)
     Route: 048
     Dates: start: 20080225, end: 20080305
  6. ROCEPHIN [Concomitant]
     Indication: URINARY TRACT INFECTION
     Dosage: 1 G, DAILY (1/D)
     Route: 042
     Dates: start: 20080225, end: 20080307
  7. LOVENOX [Concomitant]
     Indication: ARRHYTHMIA
     Dosage: 1 D/F, OTHER
     Route: 058
     Dates: start: 20080226, end: 20080310
  8. FUNGIZONE [Concomitant]
     Indication: FUNGAL INFECTION

REACTIONS (2)
  - HEPATITIS TOXIC [None]
  - SEPTIC SHOCK [None]
